FAERS Safety Report 4916467-6 (Version None)
Quarter: 2006Q1

REPORT INFORMATION
  Report Type: 
  Country: None (occurrence: None)
  Receive Date: 20060220
  Receipt Date: 20060209
  Transmission Date: 20060701
  Serious: Yes (Hospitalization)
  Sender: FDA-Public Use
  Company Number: BR-SOLVAY-00206000483

PATIENT
  Age: 35 Year
  Sex: Female

DRUGS (2)
  1. UTROGESTAN [Suspect]
     Indication: IN VITRO FERTILISATION
     Dosage: DAILY DOSE: 600 MILLIGRAM(S)
     Route: 065
  2. PROFASI HP [Suspect]
     Indication: ILL-DEFINED DISORDER
     Dosage: DAILY DOSE:  UNKNOWN
     Route: 065

REACTIONS (6)
  - ABDOMINAL PAIN [None]
  - CAESAREAN SECTION [None]
  - MASS [None]
  - OVARIAN TORSION [None]
  - PREMATURE LABOUR [None]
  - VOMITING [None]
